FAERS Safety Report 23467775 (Version 4)
Quarter: 2024Q2

REPORT INFORMATION
  Report Type: Spontaneous
  Country: US (occurrence: US)
  Receive Date: 20240201
  Receipt Date: 20240409
  Transmission Date: 20240716
  Serious: Yes (Hospitalization, Other)
  Sender: FDA-Public Use
  Company Number: US-OTSUKA-2024_002237

PATIENT
  Age: 69 Year
  Sex: Female

DRUGS (4)
  1. REXULTI [Suspect]
     Active Substance: BREXPIPRAZOLE
     Indication: Product used for unknown indication
     Dosage: UNK
     Route: 065
  2. INGREZZA [Suspect]
     Active Substance: VALBENAZINE
     Indication: Dyskinesia
     Dosage: 40 MG, QD
     Route: 048
     Dates: start: 20200805, end: 20200811
  3. INGREZZA [Suspect]
     Active Substance: VALBENAZINE
     Dosage: 80 MG
     Route: 048
     Dates: start: 20200812, end: 20200901
  4. INGREZZA [Suspect]
     Active Substance: VALBENAZINE
     Dosage: 80 MG
     Route: 048
     Dates: start: 20200902

REACTIONS (39)
  - Guillain-Barre syndrome [Unknown]
  - Deafness [Not Recovered/Not Resolved]
  - Road traffic accident [Unknown]
  - Oesophageal spasm [Not Recovered/Not Resolved]
  - Oesophageal dilation procedure [Not Recovered/Not Resolved]
  - Adrenal mass [Unknown]
  - Concussion [Unknown]
  - Rotator cuff repair [Unknown]
  - Tendon rupture [Unknown]
  - Vaccine associated paralytic poliomyelitis [Unknown]
  - Tardive dyskinesia [Not Recovered/Not Resolved]
  - Confusional state [Unknown]
  - Head injury [Unknown]
  - Neurological symptom [Unknown]
  - Amnesia [Unknown]
  - Ear dryness [Not Recovered/Not Resolved]
  - Depressed mood [Not Recovered/Not Resolved]
  - Memory impairment [Not Recovered/Not Resolved]
  - Blood test abnormal [Unknown]
  - Epiretinal membrane [Unknown]
  - Lacrimation decreased [Not Recovered/Not Resolved]
  - Hair texture abnormal [Not Recovered/Not Resolved]
  - Dermatitis contact [Unknown]
  - Dry skin [Not Recovered/Not Resolved]
  - Gait disturbance [Unknown]
  - Paraesthesia [Unknown]
  - Hypertonia [Unknown]
  - Vomiting [Unknown]
  - Bruxism [Unknown]
  - Vertigo [Not Recovered/Not Resolved]
  - Blood cholesterol increased [Not Recovered/Not Resolved]
  - Dyskinesia [Unknown]
  - Vision blurred [Not Recovered/Not Resolved]
  - Dry mouth [Not Recovered/Not Resolved]
  - Anxiety [Unknown]
  - Somnolence [Unknown]
  - Blood glucose increased [Not Recovered/Not Resolved]
  - Dizziness [Not Recovered/Not Resolved]
  - Drug ineffective [Unknown]

NARRATIVE: CASE EVENT DATE: 20221101
